FAERS Safety Report 14150491 (Version 1)
Quarter: 2017Q4

REPORT INFORMATION
  Report Type: Spontaneous
  Country: AU (occurrence: AU)
  Receive Date: 20171101
  Receipt Date: 20171101
  Transmission Date: 20180321
  Serious: No
  Sender: FDA-Public Use
  Company Number: AU-JAZZ-2017-AU-007329

PATIENT
  Age: 3 Year

DRUGS (2)
  1. DEFIBROTIDE (NPB) [Suspect]
     Active Substance: DEFIBROTIDE SODIUM
     Indication: PROPHYLAXIS
     Dosage: PROPHYLAXIS OF VOD, 21 DAYS
  2. DEFIBROTIDE (NPB) [Suspect]
     Active Substance: DEFIBROTIDE SODIUM
     Indication: VENOOCCLUSIVE DISEASE
     Dosage: TREATMENT OF VOD, 48 DAYS

REACTIONS (1)
  - Product use in unapproved indication [Unknown]
